FAERS Safety Report 19670778 (Version 2)
Quarter: 2021Q3

REPORT INFORMATION
  Report Type: Other
  Country: CA (occurrence: CA)
  Receive Date: 20210806
  Receipt Date: 20210818
  Transmission Date: 20211014
  Serious: Yes (Hospitalization, Other)
  Sender: FDA-Public Use
  Company Number: CA-INTERCEPT-PM2021002373

PATIENT
  Sex: Female

DRUGS (2)
  1. URSODIOL. [Concomitant]
     Active Substance: URSODIOL
     Dosage: 750 MILLIGRAM, QD
     Route: 048
     Dates: start: 2003
  2. OCALIVA [Suspect]
     Active Substance: OBETICHOLIC ACID
     Indication: PRIMARY BILIARY CHOLANGITIS
     Dosage: 5 MILLIGRAM, QD
     Route: 048
     Dates: start: 20190507

REACTIONS (6)
  - Hip surgery [Unknown]
  - Fall [Unknown]
  - Confusional state [Unknown]
  - Hip fracture [Not Recovered/Not Resolved]
  - Therapy interrupted [Recovered/Resolved]
  - Pulmonary congestion [Not Recovered/Not Resolved]

NARRATIVE: CASE EVENT DATE: 2021
